FAERS Safety Report 8854340 (Version 1)
Quarter: 2012Q4

REPORT INFORMATION
  Report Type: Spontaneous
  Country: US (occurrence: None)
  Receive Date: 20121019
  Receipt Date: 20121019
  Transmission Date: 20130627
  Serious: Yes (Hospitalization)
  Sender: FDA-Public Use
  Company Number: None

PATIENT
  Age: 68 Year
  Sex: Male
  Weight: 90.72 kg

DRUGS (6)
  1. IMIQUIMOD [Suspect]
     Indication: ACTINIC KERATOSIS
     Route: 061
     Dates: start: 20120627, end: 20120710
  2. IMIQUIMOD [Suspect]
     Indication: ACTINIC KERATOSIS
     Dates: start: 20120725, end: 20120807
  3. CENTRUM SILVER [Concomitant]
  4. SIMVASTATIN [Concomitant]
  5. NIASPAN [Concomitant]
  6. AVODART [Concomitant]

REACTIONS (3)
  - Road traffic accident [None]
  - Rib fracture [None]
  - Pneumothorax traumatic [None]
